FAERS Safety Report 24946254 (Version 1)
Quarter: 2025Q1

REPORT INFORMATION
  Report Type: Spontaneous
  Country: IN (occurrence: IN)
  Receive Date: 20250210
  Receipt Date: 20250210
  Transmission Date: 20250409
  Serious: No
  Sender: ALKEM
  Company Number: None

PATIENT
  Age: 46 Year
  Sex: Male
  Weight: 56 kg

DRUGS (6)
  1. LINEZOLID [Suspect]
     Active Substance: LINEZOLID
     Indication: Anal abscess
     Dosage: 1 DOSAGE FORM, BID, (TABLET 600 MG))
     Route: 065
  2. LINEZOLID [Suspect]
     Active Substance: LINEZOLID
     Dosage: 600 MILLIGRAM, BID (RECHALLANGE DOSE)
     Route: 065
  3. CHYMORAL FORTE [Concomitant]
     Indication: Anal abscess
     Dosage: 1 DOSAGE FORM, BID
     Route: 065
  4. LEVOFLOXACIN [Concomitant]
     Active Substance: LEVOFLOXACIN
     Indication: Anal abscess
     Dosage: 1 DOSAGE FORM, QD (500 MG OD)
     Route: 065
  5. PAN [Concomitant]
     Indication: Anal abscess
     Dosage: 1 DOSAGE FORM, QD, (40 MG ONCE A DAY)
     Route: 065
  6. Zerodol [Concomitant]
     Indication: Anal abscess
     Dosage: 1 DOSAGE FORM, BID
     Route: 065

REACTIONS (3)
  - Constipation [Recovered/Resolved]
  - Faeces discoloured [Recovered/Resolved]
  - Frequent bowel movements [Recovered/Resolved]
